FAERS Safety Report 8402809-6 (Version None)
Quarter: 2012Q2

REPORT INFORMATION
  Report Type: 
  Country: None (occurrence: None)
  Receive Date: 20120601
  Receipt Date: 20120524
  Transmission Date: 20120825
  Serious: Yes (Hospitalization, Other)
  Sender: FDA-Public Use
  Company Number: US-ABBOTT-12P-163-0939211-00

PATIENT
  Age: 49 Year
  Sex: Female

DRUGS (4)
  1. HUMIRA [Suspect]
     Indication: CROHN'S DISEASE
     Dates: start: 20120123, end: 20120401
  2. PROTONIX [Concomitant]
     Indication: GASTROOESOPHAGEAL REFLUX DISEASE
     Route: 048
  3. CELEXA [Concomitant]
     Indication: ANXIETY
     Route: 048
  4. CELEXA [Concomitant]
     Indication: PANIC ATTACK

REACTIONS (5)
  - DRUG INEFFECTIVE [None]
  - RECTAL HAEMORRHAGE [None]
  - DIARRHOEA HAEMORRHAGIC [None]
  - CROHN'S DISEASE [None]
  - PAIN [None]
